FAERS Safety Report 25739736 (Version 1)
Quarter: 2025Q3

REPORT INFORMATION
  Report Type: Spontaneous
  Country: CA (occurrence: CA)
  Receive Date: 20250829
  Receipt Date: 20250829
  Transmission Date: 20251021
  Serious: Yes (Death, Other)
  Sender: DR REDDYS
  Company Number: CA-DRL-USA-CAN/2025/08/013141

PATIENT
  Age: 79 Year
  Sex: Male

DRUGS (11)
  1. AZACITIDINE [Suspect]
     Active Substance: AZACITIDINE
     Indication: Acute myeloid leukaemia
     Route: 065
  2. AZACITIDINE [Suspect]
     Active Substance: AZACITIDINE
     Route: 065
  3. AZACITIDINE [Suspect]
     Active Substance: AZACITIDINE
     Route: 065
  4. AZACITIDINE [Suspect]
     Active Substance: AZACITIDINE
     Route: 065
  5. AZACITIDINE [Suspect]
     Active Substance: AZACITIDINE
     Route: 065
  6. AZACITIDINE [Suspect]
     Active Substance: AZACITIDINE
     Route: 065
  7. AZACITIDINE [Suspect]
     Active Substance: AZACITIDINE
     Route: 065
  8. VENETOCLAX [Suspect]
     Active Substance: VENETOCLAX
     Indication: Acute myeloid leukaemia
     Route: 048
  9. VENETOCLAX [Suspect]
     Active Substance: VENETOCLAX
     Route: 048
  10. VENETOCLAX [Suspect]
     Active Substance: VENETOCLAX
     Route: 048
  11. COVID-19 VACCINE [Concomitant]
     Indication: COVID-19 immunisation
     Route: 030

REACTIONS (1)
  - Acute myeloid leukaemia [Fatal]
